FAERS Safety Report 9014694 (Version 1)
Quarter: 2013Q1

REPORT INFORMATION
  Report Type: Spontaneous
  Country: FR (occurrence: FR)
  Receive Date: 20130115
  Receipt Date: 20130115
  Transmission Date: 20140127
  Serious: Yes (Hospitalization, Other)
  Sender: FDA-Public Use
  Company Number: FR-MERCK-2012SP018335

PATIENT
  Age: 20 Year
  Sex: Female

DRUGS (4)
  1. AERIUS [Suspect]
     Indication: PRODUCT USED FOR UNKNOWN INDICATION
  2. AERIUS [Suspect]
     Dates: start: 20120331
  3. SINGULAIR [Suspect]
     Indication: PRODUCT USED FOR UNKNOWN INDICATION
     Dates: start: 20120331
  4. PULMICORT [Suspect]
     Indication: PRODUCT USED FOR UNKNOWN INDICATION
     Route: 055
     Dates: start: 20120331

REACTIONS (2)
  - Idiopathic thrombocytopenic purpura [Unknown]
  - Condition aggravated [Unknown]
